FAERS Safety Report 19027589 (Version 3)
Quarter: 2021Q2

REPORT INFORMATION
  Report Type: Report from Study
  Country: RU (occurrence: RU)
  Receive Date: 20210318
  Receipt Date: 20210504
  Transmission Date: 20210717
  Serious: Yes (Hospitalization)
  Sender: FDA-Public Use
  Company Number: RU-TAKEDA-2021TUS014449

PATIENT
  Age: 28 Year
  Sex: Male

DRUGS (4)
  1. AZATHIOPRINE. [Concomitant]
     Active Substance: AZATHIOPRINE
     Dosage: 125 MILLIGRAM
  2. METYPRED [METHYLPREDNISOLONE] [Concomitant]
     Active Substance: METHYLPREDNISOLONE
     Dosage: UNK
  3. MESALAZINUM [Concomitant]
     Active Substance: MESALAMINE
     Dosage: 3 GRAM
  4. VEDOLIZUMAB [Suspect]
     Active Substance: VEDOLIZUMAB
     Indication: CROHN^S DISEASE
     Dosage: 300 MILLIGRAM
     Route: 042
     Dates: start: 20200806, end: 202103

REACTIONS (5)
  - Frequent bowel movements [Recovered/Resolved]
  - Drug ineffective [Unknown]
  - Asthenia [Recovered/Resolved]
  - Body temperature increased [Recovered/Resolved]
  - Weight decreased [Recovered/Resolved]

NARRATIVE: CASE EVENT DATE: 20210224
